FAERS Safety Report 7755090-5 (Version None)
Quarter: 2011Q3

REPORT INFORMATION
  Report Type: 
  Country: None (occurrence: None)
  Receive Date: 20110913
  Receipt Date: 20110902
  Transmission Date: 20111222
  Serious: Yes (Disabling, Other)
  Sender: FDA-Public Use
  Company Number: ACO_26510_2011

PATIENT
  Age: 39 Year
  Sex: Male
  Weight: 108.8 kg

DRUGS (1)
  1. AMPYRA [Suspect]
     Indication: GAIT DISTURBANCE
     Dosage: 10 MG, BID, ORAL
     Route: 048
     Dates: start: 20110201, end: 20110401

REACTIONS (6)
  - GAIT DISTURBANCE [None]
  - DYSSTASIA [None]
  - MUSCULAR WEAKNESS [None]
  - MULTIPLE SCLEROSIS RELAPSE [None]
  - WHEELCHAIR USER [None]
  - ACTIVITIES OF DAILY LIVING IMPAIRED [None]
